FAERS Safety Report 5611927-7 (Version None)
Quarter: 2008Q1

REPORT INFORMATION
  Report Type: 
  Country: None (occurrence: None)
  Receive Date: 20080204
  Receipt Date: 20080130
  Transmission Date: 20080703
  Serious: Yes (Other)
  Sender: FDA-Public Use
  Company Number: JP-SP-2008-00264

PATIENT
  Age: 96 Year

DRUGS (2)
  1. IMMUCYST [Suspect]
     Indication: BLADDER CANCER
     Route: 043
     Dates: start: 20080116
  2. IMMUCYST [Suspect]
     Route: 043
     Dates: start: 20080116

REACTIONS (7)
  - C-REACTIVE PROTEIN INCREASED [None]
  - DISSEMINATED INTRAVASCULAR COAGULATION [None]
  - HYDRONEPHROSIS [None]
  - INCORRECT DRUG DOSAGE FORM ADMINISTERED [None]
  - PYELONEPHRITIS [None]
  - PYREXIA [None]
  - SEPSIS [None]
